FAERS Safety Report 9157965 (Version 1)
Quarter: 2013Q1

REPORT INFORMATION
  Report Type: Report from Study
  Country: GB (occurrence: PH)
  Receive Date: 20130312
  Receipt Date: 20130312
  Transmission Date: 20140127
  Serious: Yes (Other)
  Sender: FDA-Public Use
  Company Number: GB-CELGENEUS-128-20785-07041518

PATIENT
  Sex: Male

DRUGS (12)
  1. THALIDOMIDE [Suspect]
     Indication: PLASMA CELL MYELOMA
     Dosage: 100 MILLIGRAM
     Route: 048
     Dates: start: 20061121, end: 20070411
  2. ASA [Concomitant]
     Indication: PROPHYLAXIS
     Dosage: 80 MILLIGRAM
  3. ASA [Concomitant]
     Dosage: 80 MILLIGRAM
     Route: 048
     Dates: start: 20070314
  4. METOPROLOL [Concomitant]
     Indication: HYPERTENSION
     Dosage: 50 MILLIGRAM
     Route: 048
  5. IMIDAPRIL [Concomitant]
     Indication: HYPERTENSION
     Dosage: 10 MILLIGRAM
     Route: 065
  6. ISOSORBIDE MONONITRATE [Concomitant]
     Indication: HYPERTENSION
     Dosage: 30 MILLIGRAM
     Route: 065
  7. MULTIVITAMINS [Concomitant]
     Indication: PRODUCT USED FOR UNKNOWN INDICATION
     Route: 048
  8. LACTULOSE [Concomitant]
     Indication: CONSTIPATION
     Dosage: 30 CC
     Route: 048
     Dates: start: 20061221
  9. DULCOLAX [Concomitant]
     Indication: CONSTIPATION
     Dosage: 15 MILLIGRAM
     Route: 048
     Dates: start: 20070208, end: 20070210
  10. MELOXICAM [Concomitant]
     Indication: MUSCULOSKELETAL PAIN
     Dosage: 15 MILLIGRAM
     Route: 048
     Dates: start: 20070218, end: 20070221
  11. EPARISON [Concomitant]
     Indication: MUSCULOSKELETAL PAIN
     Dosage: 50 MILLIGRAM
     Route: 048
     Dates: start: 20070218, end: 20070221
  12. ASPILET [Concomitant]
     Indication: THROMBOCYTOSIS
     Dosage: 80 MILLIGRAM
     Route: 048
     Dates: start: 20070216

REACTIONS (3)
  - Platelet count increased [Not Recovered/Not Resolved]
  - Haemoglobin abnormal [Recovered/Resolved]
  - Haematocrit increased [Not Recovered/Not Resolved]
